FAERS Safety Report 5723204-4 (Version None)
Quarter: 2008Q2

REPORT INFORMATION
  Report Type: 
  Country: None (occurrence: None)
  Receive Date: 20080423
  Receipt Date: 20070910
  Transmission Date: 20081010
  Serious: Yes (Hospitalization)
  Sender: FDA-Public Use
  Company Number: 247432

PATIENT
  Age: 43 Year
  Sex: Female
  Weight: 53 kg

DRUGS (5)
  1. AVASTATIN(BEVACIZUMAB) POWDER AND SOLVENT FOR SOLUTION FOR INFUSION, 1 [Suspect]
     Indication: NEUROENDOCRINE CARCINOMA
     Dosage: 5 MG/KG, INTRAVENOUS
     Route: 042
  2. FLUOROURACIL [Suspect]
     Indication: NEUROENDOCRINE CARCINOMA
     Dosage: 400 MG/M2, INTRAVENOUS
     Route: 042
  3. DOXORUBICIN HCL [Suspect]
     Indication: NEUROENDOCRINE CARCINOMA
     Dosage: 40 MG/M2, INTRAVENOUS
     Route: 042
  4. STREPTOZOCIN(STREPTOZOCIN) [Suspect]
     Indication: NEUROENDOCRINE CARCINOMA
     Dosage: 400 MG/M2, INTRAVENOUS
     Route: 042
  5. PROTONIX [Concomitant]

REACTIONS (2)
  - NEUTROPENIA [None]
  - STOMATITIS [None]
